FAERS Safety Report 21638010 (Version 2)
Quarter: 2023Q2

REPORT INFORMATION
  Report Type: Spontaneous
  Country: US (occurrence: US)
  Receive Date: 20221124
  Receipt Date: 20230630
  Transmission Date: 20230722
  Serious: No
  Sender: FDA-Public Use
  Company Number: US-drreddys-SPO/USA/22/0156885

PATIENT
  Age: 74 Year

DRUGS (2)
  1. ACCUTANE [Suspect]
     Active Substance: ISOTRETINOIN
     Indication: Acne
     Dosage: RMA ISSUE DATE: 28 SEPTEMBER 2022 04:47:58 PM, 22 DECEMBER 2022 12:21:24 PM
  2. ZENATANE [Suspect]
     Active Substance: ISOTRETINOIN
     Indication: Product used for unknown indication
     Dosage: RMA ISSUE DATE: 01/26/2023 09:11:00 AM, 02/27 FEBRUARY 2023 05:03:12 PM, 31 MARCH 2023 10:43:29 AM

REACTIONS (1)
  - Dry skin [Unknown]
